FAERS Safety Report 23017952 (Version 4)
Quarter: 2025Q1

REPORT INFORMATION
  Report Type: Report from Study
  Country: US (occurrence: US)
  Receive Date: 20231003
  Receipt Date: 20250206
  Transmission Date: 20250409
  Serious: Yes (Other)
  Sender: ROCHE
  Company Number: US-ROCHE-3288310

PATIENT
  Age: 51 Year
  Sex: Female
  Weight: 75.75 kg

DRUGS (29)
  1. XOLAIR [Suspect]
     Active Substance: OMALIZUMAB
     Indication: Asthma
     Route: 058
     Dates: start: 20181024
  2. XOLAIR [Suspect]
     Active Substance: OMALIZUMAB
     Indication: Asthma
     Dosage: ANTICIPATED DATE OF TREATMENT: 15/AUG/2023, LAST INJECTION: 25/JUL/2023
     Route: 058
  3. XOLAIR [Suspect]
     Active Substance: OMALIZUMAB
     Indication: Seasonal allergy
     Dosage: ANTICIPATED DATE OF TREATMENT: 15/AUG/2023, LAST INJECTION: 25/JUL/2023
     Route: 058
  4. XOPENEX [Concomitant]
     Active Substance: LEVALBUTEROL HYDROCHLORIDE
  5. TIROSINT [Concomitant]
     Active Substance: LEVOTHYROXINE SODIUM
  6. TRIAMCINOLONE ACETONIDE [Concomitant]
     Active Substance: TRIAMCINOLONE ACETONIDE
  7. REPAGLINIDE [Concomitant]
     Active Substance: REPAGLINIDE
  8. NASACORT [Concomitant]
     Active Substance: TRIAMCINOLONE ACETONIDE
  9. MUCINEX [Concomitant]
     Active Substance: GUAIFENESIN
  10. MONTELUKAST SODIUM [Concomitant]
     Active Substance: MONTELUKAST SODIUM
  11. LOSARTAN [Concomitant]
     Active Substance: LOSARTAN
  12. LEVALBUTEROL [Concomitant]
     Active Substance: LEVALBUTEROL
  13. IPRATROPIUM BROMIDE [Concomitant]
     Active Substance: IPRATROPIUM BROMIDE
  14. HYDROCORTISONE [Concomitant]
     Active Substance: HYDROCORTISONE
  15. FERROUS SULFATE [Concomitant]
     Active Substance: FERROUS SULFATE
  16. DETROL LA [Concomitant]
     Active Substance: TOLTERODINE TARTRATE
  17. VITAMIN B12 [Concomitant]
     Active Substance: CYANOCOBALAMIN
  18. ALLEGRA ALLERGY [Concomitant]
     Active Substance: FEXOFENADINE HYDROCHLORIDE
  19. AUVI-Q [Concomitant]
     Active Substance: EPINEPHRINE
  20. ACARBOSE [Concomitant]
     Active Substance: ACARBOSE
  21. ALLEGRA-D [Concomitant]
     Active Substance: FEXOFENADINE HYDROCHLORIDE\PSEUDOEPHEDRINE HYDROCHLORIDE
  22. VITAMIN D3 [Concomitant]
     Active Substance: CHOLECALCIFEROL
  23. SINGULAIR [Concomitant]
     Active Substance: MONTELUKAST SODIUM
  24. DULERA [Concomitant]
     Active Substance: FORMOTEROL FUMARATE DIHYDRATE\MOMETASONE FUROATE
  25. CALCIUM CITRATE [Concomitant]
     Active Substance: CALCIUM CITRATE
  26. BELVIQ [Concomitant]
     Active Substance: LORCASERIN HYDROCHLORIDE
  27. FLUCONAZOLE [Concomitant]
     Active Substance: FLUCONAZOLE
  28. FEXOFENADINE [Concomitant]
     Active Substance: FEXOFENADINE HYDROCHLORIDE
  29. DIFLUCAN [Concomitant]
     Active Substance: FLUCONAZOLE

REACTIONS (12)
  - Off label use [Unknown]
  - Musculoskeletal chest pain [Unknown]
  - COVID-19 [Recovered/Resolved]
  - Nephrolithiasis [Unknown]
  - Pruritus [Unknown]
  - Anaphylactic reaction [Unknown]
  - Anxiety disorder [Unknown]
  - Fungal infection [Recovered/Resolved]
  - Oral candidiasis [Unknown]
  - Condition aggravated [Unknown]
  - Ear infection [Unknown]
  - Circumstance or information capable of leading to medication error [Unknown]

NARRATIVE: CASE EVENT DATE: 20190613
